FAERS Safety Report 23569808 (Version 3)
Quarter: 2024Q1

REPORT INFORMATION
  Report Type: Spontaneous
  Country: US (occurrence: US)
  Receive Date: 20240227
  Receipt Date: 20240306
  Transmission Date: 20240410
  Serious: Yes (Hospitalization, Other)
  Sender: FDA-Public Use
  Company Number: US-ABBVIE-5651909

PATIENT
  Sex: Female

DRUGS (1)
  1. BOTOX COSMETIC [Suspect]
     Active Substance: ONABOTULINUMTOXINA
     Indication: Migraine
     Dosage: TIME INTERVAL: AS NECESSARY
     Route: 065

REACTIONS (11)
  - Paralysis [Unknown]
  - Dizziness [Unknown]
  - Dysphagia [Not Recovered/Not Resolved]
  - Choking [Unknown]
  - Hospitalisation [Unknown]
  - Enteral nutrition [Unknown]
  - Eyelid ptosis [Unknown]
  - Therapeutic response shortened [Unknown]
  - Vision blurred [Unknown]
  - Ocular discomfort [Unknown]
  - Botulism [Unknown]

NARRATIVE: CASE EVENT DATE: 20240215
